FAERS Safety Report 19256291 (Version 1)
Quarter: 2021Q2

REPORT INFORMATION
  Report Type: Spontaneous
  Country: DE (occurrence: DE)
  Receive Date: 20210513
  Receipt Date: 20210513
  Transmission Date: 20210717
  Serious: Yes (Other)
  Sender: FDA-Public Use
  Company Number: DE-009507513-2105DEU002364

PATIENT
  Age: 84 Year
  Sex: Male
  Weight: 72 kg

DRUGS (2)
  1. VELMETIA [Suspect]
     Active Substance: METFORMIN\SITAGLIPTIN
     Indication: TYPE 2 DIABETES MELLITUS
     Dosage: 2 TABLETS QD
     Route: 048
  2. JAMBOLAN [Suspect]
     Active Substance: HERBALS
     Indication: TYPE 2 DIABETES MELLITUS
     Dosage: 5 DROPS (1/12 MILLILITER), Q3D
     Route: 048
     Dates: start: 202012, end: 202102

REACTIONS (1)
  - Glycosylated haemoglobin increased [Unknown]
